FAERS Safety Report 7438334-9 (Version None)
Quarter: 2011Q2

REPORT INFORMATION
  Report Type: 
  Country: None (occurrence: None)
  Receive Date: 20110418
  Receipt Date: 20110411
  Transmission Date: 20111010
  Serious: Yes (Death, Life-Threatening)
  Sender: FDA-Public Use
  Company Number: 2011079038

PATIENT
  Age: 90 Year
  Sex: Male

DRUGS (2)
  1. TROMBEX (CLOPIDOGREL SULFATE) [Concomitant]
  2. FRAGMIN [Suspect]
     Indication: ATRIAL FIBRILLATION
     Dosage: 12500 IU/1 ML DAILY, SUBCUTANEOUS
     Route: 058
     Dates: start: 20110307, end: 20110310

REACTIONS (2)
  - THROMBOCYTOPENIA [None]
  - CARDIAC ARREST [None]
